FAERS Safety Report 4389894-6 (Version None)
Quarter: 2004Q2

REPORT INFORMATION
  Report Type: 
  Country: None (occurrence: None)
  Receive Date: 20040628
  Receipt Date: 20040610
  Transmission Date: 20050107
  Serious: Yes (Hospitalization)
  Sender: FDA-Public Use
  Company Number: 700718

PATIENT
  Age: 46 Year
  Sex: Male
  Weight: 123.3784 kg

DRUGS (11)
  1. ALEFACEPT [Suspect]
     Indication: PSORIASIS
     Dosage: 7.5 MG QW IV
     Route: 042
     Dates: start: 20010709, end: 20020715
  2. ROSIGLITAZONE [Concomitant]
  3. GLIMEPIRIDE [Concomitant]
  4. LEVOTHYROXINE SODIUM [Concomitant]
  5. LISINOPRIL [Concomitant]
  6. FENOFIBRATE [Concomitant]
  7. DICYCLOMINE [Concomitant]
  8. HYOSCYAMINE SULFATE [Concomitant]
  9. ESOMEPRAZOLE [Concomitant]
  10. METOCLOPRAMIDE [Concomitant]
  11. HYDROXYZINE [Concomitant]

REACTIONS (9)
  - B-CELL LYMPHOMA [None]
  - BACK PAIN [None]
  - BLOOD GLUCOSE INCREASED [None]
  - CELLULITIS [None]
  - DIARRHOEA [None]
  - FATIGUE [None]
  - FEELING ABNORMAL [None]
  - FLANK PAIN [None]
  - NAUSEA [None]
